FAERS Safety Report 8354118-1 (Version None)
Quarter: 2012Q2

REPORT INFORMATION
  Report Type: 
  Country: None (occurrence: None)
  Receive Date: 20120511
  Receipt Date: 20120509
  Transmission Date: 20120825
  Serious: Yes (Other)
  Sender: FDA-Public Use
  Company Number: US-ROCHE-788434

PATIENT
  Sex: Male
  Weight: 59.02 kg

DRUGS (2)
  1. ACCUTANE [Suspect]
     Indication: ACNE
     Dates: start: 20000502, end: 20001025
  2. ACCUTANE [Suspect]
     Route: 065
     Dates: start: 20010101, end: 20020101

REACTIONS (7)
  - INFLAMMATORY BOWEL DISEASE [None]
  - SKIN PAPILLOMA [None]
  - EMOTIONAL DISTRESS [None]
  - DRY SKIN [None]
  - COLITIS ULCERATIVE [None]
  - BLOOD ALKALINE PHOSPHATASE INCREASED [None]
  - BLOOD CHOLESTEROL INCREASED [None]
